FAERS Safety Report 15545848 (Version 1)
Quarter: 2018Q4

REPORT INFORMATION
  Report Type: Spontaneous
  Country: US (occurrence: US)
  Receive Date: 20181024
  Receipt Date: 20181024
  Transmission Date: 20190205
  Serious: No
  Sender: FDA-Public Use
  Company Number: US-SA-2018SA291429

PATIENT
  Age: 42 Year
  Sex: Male
  Weight: 86.17 kg

DRUGS (10)
  1. CEREZYME [Suspect]
     Active Substance: IMIGLUCERASE
     Indication: LIPIDOSIS
     Dosage: 5200 UNITS, VERY 2 WEEKS
     Route: 041
  2. EPINEPHRINE. [Concomitant]
     Active Substance: EPINEPHRINE
     Indication: ANAPHYLACTIC REACTION
     Dosage: 0.3 MG
     Route: 030
     Dates: start: 20180606
  3. CEREZYME [Suspect]
     Active Substance: IMIGLUCERASE
     Indication: FABRY^S DISEASE
  4. DIPHENHYDRAMINE. [Concomitant]
     Active Substance: DIPHENHYDRAMINE
     Indication: ANAPHYLACTIC REACTION
     Dosage: 25 MG
     Route: 042
     Dates: start: 20180606
  5. SODIUM CHLORIDE. [Concomitant]
     Active Substance: SODIUM CHLORIDE
     Dosage: 0.9 %
     Route: 042
     Dates: start: 20180606
  6. SOLU-MEDROL [Concomitant]
     Active Substance: METHYLPREDNISOLONE SODIUM SUCCINATE
     Indication: ANAPHYLACTIC REACTION
     Dosage: 100 MG
     Route: 042
     Dates: start: 20180606
  7. MULTIVITAMIN [VITAMINS NOS] [Concomitant]
     Dosage: 1 TAB
     Route: 048
     Dates: start: 20180601
  8. NORMAL SALINE [Concomitant]
     Active Substance: SODIUM CHLORIDE
     Dosage: 0.9 %
     Route: 042
     Dates: start: 20180606
  9. STERILE WATER [Concomitant]
     Active Substance: WATER
     Dosage: 1 EACH
     Route: 042
     Dates: start: 20180606
  10. AMLODIPINE BESYLATE;BENAZEPRIL [Concomitant]
     Dosage: 1 CAPSULE
     Route: 048
     Dates: start: 20180601

REACTIONS (2)
  - Dyspnoea [Unknown]
  - Cough [Unknown]
